FAERS Safety Report 5607491-9 (Version None)
Quarter: 2008Q1

REPORT INFORMATION
  Report Type: 
  Country: None (occurrence: None)
  Receive Date: 20080130
  Receipt Date: 20080121
  Transmission Date: 20080703
  Serious: Yes (Hospitalization)
  Sender: FDA-Public Use
  Company Number: AU-NOVOPROD-271202

PATIENT

DRUGS (2)
  1. ACTRAPID HM PENFILL [Suspect]
  2. PROTAPHANE PENFILL [Suspect]
     Indication: DRUG USE FOR UNKNOWN INDICATION

REACTIONS (5)
  - BLISTER [None]
  - EXCORIATION [None]
  - FALL [None]
  - GANGRENE [None]
  - SKIN GRAFT [None]
